FAERS Safety Report 6045095-7 (Version None)
Quarter: 2009Q1

REPORT INFORMATION
  Report Type: 
  Country: None (occurrence: None)
  Receive Date: 20090121
  Receipt Date: 20090115
  Transmission Date: 20090719
  Serious: Yes (Hospitalization)
  Sender: FDA-Public Use
  Company Number: GB-BIOGENIDEC-2008BI030256

PATIENT
  Age: 32 Year
  Sex: Female

DRUGS (4)
  1. TYSABRI [Suspect]
     Indication: MULTIPLE SCLEROSIS
     Route: 042
     Dates: start: 20081110, end: 20081110
  2. ALBUTEROL [Concomitant]
     Indication: ASTHMA
  3. BECOTIDE [Concomitant]
     Indication: ASTHMA
  4. LEVOTHYROXINE SODIUM [Concomitant]

REACTIONS (1)
  - HYPERSENSITIVITY [None]
